FAERS Safety Report 7324165-7 (Version None)
Quarter: 2011Q1

REPORT INFORMATION
  Report Type: 
  Country: None (occurrence: None)
  Receive Date: 20110217
  Receipt Date: 20110131
  Transmission Date: 20110831
  Serious: Yes (Hospitalization)
  Sender: FDA-Public Use
  Company Number: 2011020001

PATIENT
  Age: 58 Year
  Sex: Male

DRUGS (23)
  1. MORPHINE SULFATE [Concomitant]
  2. ASPIRIN [Concomitant]
  3. DILAUDID [Concomitant]
  4. ENALAPRIL MALEATE [Concomitant]
  5. AMITRIPTYLINE (AMITRIPTYLINE) [Concomitant]
  6. PLAVIX [Concomitant]
  7. TALWIN NX (PENTAZOCINE LACTATE) [Concomitant]
  8. MAGIC MOUTHWASH [Concomitant]
  9. ALPRAZOLAM (ALPRAZALAM) [Concomitant]
  10. PHENERGAN [Concomitant]
  11. NEXIUM [Concomitant]
  12. ABH (LORAZEPAM, DIPHENHYDRAMINE,/HALOPERIDOL) [Concomitant]
  13. MEGESTROL ACETATE [Concomitant]
  14. MAGNESIUM OXIDE (MAGNESIUM OXIDE) [Concomitant]
  15. MORPHINE SULFATE IR (MORPHINE SULFATE) [Concomitant]
  16. CYMBALTA [Concomitant]
  17. ALBUTEROL/ATROVENT (ALBUTEROL, IPRATROPIUM) [Concomitant]
  18. ATENOLOL [Concomitant]
  19. ONSOLIS [Suspect]
     Indication: CANCER PAIN
     Dosage: TO BE TITRATED UP TO 4-200 MCG/DOSE (UP TO 4 TIMES DAILY), BU
     Route: 002
     Dates: start: 20110125, end: 20110101
  20. MS CONTIN [Concomitant]
  21. METHADONE (METHADONE) [Concomitant]
  22. MARINOL [Concomitant]
  23. SIMVASTATIN [Concomitant]

REACTIONS (5)
  - DEHYDRATION [None]
  - ASTHENIA [None]
  - VOMITING [None]
  - PAIN [None]
  - NAUSEA [None]
